FAERS Safety Report 11179747 (Version 1)
Quarter: 2015Q2

REPORT INFORMATION
  Report Type: Spontaneous
  Country: US (occurrence: None)
  Receive Date: 20150609
  Receipt Date: 20150609
  Transmission Date: 20150821
  Serious: Yes (Hospitalization)
  Sender: FDA-Public Use
  Company Number: US-H14001-15-00887

PATIENT
  Age: 62 Year
  Sex: Male
  Weight: 71.65 kg

DRUGS (4)
  1. RAMUCIRUMAB (RAMUCIRUMAB) (8 MILLIGRAM(S)/KILOGRAM) (RAMUCIRUMAB) [Suspect]
     Active Substance: RAMUCIRUMAB
     Indication: NEOPLASM MALIGNANT
     Dosage: CYCLICAL
     Route: 042
     Dates: start: 20150304
  2. 5-FLUOROURACIL (FLUOROURACIL) (400 MILLIGRAM(S)/SQ.METER, UNKNOWN) (FLUOROURACIL) [Concomitant]
     Active Substance: FLUOROURACIL
     Indication: NEOPLASM MALIGNANT
     Dosage: CYCLICAL
     Route: 042
     Dates: start: 20130211
  3. IRINOTECAN (IRINOTECAN) [Suspect]
     Active Substance: IRINOTECAN
     Indication: NEOPLASM MALIGNANT
     Dosage: CYCLICAL
     Route: 042
     Dates: start: 20130211
  4. FOLINIC ACID (CALCIUM FOLINATE) (400 MILLIGRAM(S)/SQ. METER, UNKNOWN) (CALCIUM FOLINATE) [Suspect]
     Active Substance: LEUCOVORIN CALCIUM
     Indication: NEOPLASM MALIGNANT
     Dosage: CYCLICAL
     Dates: start: 20130211

REACTIONS (1)
  - Intestinal obstruction [None]

NARRATIVE: CASE EVENT DATE: 20150422
